FAERS Safety Report 5423169-9 (Version None)
Quarter: 2007Q3

REPORT INFORMATION
  Report Type: 
  Country: None (occurrence: None)
  Receive Date: 20070821
  Receipt Date: 20070810
  Transmission Date: 20080115
  Serious: Yes (Hospitalization)
  Sender: FDA-Public Use
  Company Number: E2020-01525-SPO-AU

PATIENT
  Age: 82 Year
  Sex: Male

DRUGS (3)
  1. ARICEPT [Suspect]
     Indication: DEMENTIA ALZHEIMER'S TYPE
     Dosage: 5 MG, 1 IN 1 D, ORAL
     Route: 048
     Dates: start: 20070101, end: 20070101
  2. TEMAZAPAM (TEMAZEPAM) [Concomitant]
  3. BENZO (BENZODIAZEPINE DERIVATIVES) [Concomitant]

REACTIONS (6)
  - ABNORMAL BEHAVIOUR [None]
  - ACTIVITIES OF DAILY LIVING IMPAIRED [None]
  - AGGRESSION [None]
  - COGNITIVE DISORDER [None]
  - SPOUSAL ABUSE [None]
  - UNEVALUABLE EVENT [None]
